FAERS Safety Report 5356359-4 (Version None)
Quarter: 2007Q2

REPORT INFORMATION
  Report Type: 
  Country: None (occurrence: None)
  Receive Date: 20070530
  Receipt Date: 20061106
  Transmission Date: 20071010
  Serious: Yes (Hospitalization)
  Sender: FDA-Public Use
  Company Number: US200609005070

PATIENT
  Age: 45 Year
  Sex: Female
  Weight: 60.8 kg

DRUGS (8)
  1. ZYPREXA [Suspect]
     Dosage: 7.5 MG, ORAL
     Route: 048
     Dates: start: 20010101
  2. RISPERIDONE [Concomitant]
  3. CELEXA [Concomitant]
  4. ZOLOFT [Concomitant]
  5. WELLBUTRIN [Concomitant]
  6. SEROQUEL [Concomitant]
  7. LITHIUM CARBONATE [Concomitant]
  8. GEODON [Concomitant]

REACTIONS (4)
  - BLOOD CHOLESTEROL ABNORMAL [None]
  - HYPERCALCAEMIA [None]
  - HYPERTENSION [None]
  - OVERDOSE [None]
